FAERS Safety Report 21651255 (Version 1)
Quarter: 2022Q4

REPORT INFORMATION
  Report Type: Report from Study
  Country: FR (occurrence: FR)
  Receive Date: 20221128
  Receipt Date: 20221128
  Transmission Date: 20230113
  Serious: Yes (Other)
  Sender: FDA-Public Use
  Company Number: FR-002147023-NVSC2021FR228463

PATIENT
  Age: 78 Year
  Sex: Male
  Weight: 92 kg

DRUGS (11)
  1. PACLITAXEL [Suspect]
     Active Substance: PACLITAXEL
     Indication: Non-small cell lung cancer
     Dosage: UNK
     Dates: end: 202109
  2. BEVACIZUMAB [Suspect]
     Active Substance: BEVACIZUMAB
     Indication: Non-small cell lung cancer
     Dosage: UNK
     Dates: end: 202109
  3. CAPMATINIB [Suspect]
     Active Substance: CAPMATINIB
     Indication: Non-small cell lung cancer stage II
     Dosage: 400 MG, 2X/DAY
     Route: 048
     Dates: start: 20201030, end: 202107
  4. CAPMATINIB [Suspect]
     Active Substance: CAPMATINIB
     Dosage: 600 MG
     Route: 048
     Dates: start: 202011
  5. CAPMATINIB [Suspect]
     Active Substance: CAPMATINIB
     Dosage: 200 MG, 1X/DAY
     Route: 048
     Dates: start: 20210115
  6. CAPMATINIB [Suspect]
     Active Substance: CAPMATINIB
     Dosage: 400 MG, 1X/DAY
     Route: 048
     Dates: start: 20210225
  7. CAPMATINIB [Suspect]
     Active Substance: CAPMATINIB
     Dosage: 200 MG
     Route: 048
     Dates: start: 20210403, end: 20211208
  8. CAPMATINIB [Suspect]
     Active Substance: CAPMATINIB
     Dosage: 800 MG, 1X/DAY
     Route: 048
  9. CAPMATINIB [Suspect]
     Active Substance: CAPMATINIB
     Dosage: 400 MG, 2X/DAY
     Route: 048
     Dates: start: 20210930
  10. ACETAMINOPHEN [Concomitant]
     Active Substance: ACETAMINOPHEN
     Dosage: UNK
  11. SKENAN [Concomitant]
     Active Substance: MORPHINE SULFATE

REACTIONS (7)
  - Hepatic cytolysis [Recovered/Resolved]
  - Oedema peripheral [Recovered/Resolved]
  - Anaemia [Unknown]
  - Blood sodium decreased [Unknown]
  - Oedema peripheral [Unknown]
  - Drug intolerance [Unknown]
  - Gynaecomastia [Unknown]

NARRATIVE: CASE EVENT DATE: 20201211
